FAERS Safety Report 10230194 (Version 1)
Quarter: 2014Q2

REPORT INFORMATION
  Report Type: Spontaneous
  Country: US (occurrence: None)
  Receive Date: 20140610
  Receipt Date: 20140610
  Transmission Date: 20141212
  Serious: Yes (Other)
  Sender: FDA-Public Use
  Company Number: None

PATIENT
  Age: 67 Year
  Sex: Female
  Weight: 76.2 kg

DRUGS (1)
  1. NATURE THROID [Suspect]
     Indication: THYROIDECTOMY
     Dosage: 1 PILL ONCE DAILY TAKEN BY MOUTH
     Route: 048
     Dates: start: 20140507, end: 20140607

REACTIONS (9)
  - Product formulation issue [None]
  - Wrong technique in drug usage process [None]
  - Myalgia [None]
  - Abasia [None]
  - Muscular weakness [None]
  - Fatigue [None]
  - Asthenia [None]
  - Depression [None]
  - Affective disorder [None]
